FAERS Safety Report 8231402-3 (Version None)
Quarter: 2012Q1

REPORT INFORMATION
  Report Type: 
  Country: None (occurrence: None)
  Receive Date: 20120323
  Receipt Date: 20120319
  Transmission Date: 20120608
  Serious: Yes (Hospitalization, Other)
  Sender: FDA-Public Use
  Company Number: BR-ABBOTT-12P-020-0915633-00

PATIENT
  Sex: Female
  Weight: 64 kg

DRUGS (5)
  1. PREDNISONE TAB [Concomitant]
     Indication: ARTHRALGIA
     Dosage: 40 MG DAILY
     Route: 048
  2. PREDNISONE TAB [Concomitant]
     Dosage: 10 MG DAILY
     Route: 048
  3. HUMIRA [Suspect]
     Indication: RHEUMATOID ARTHRITIS
     Route: 058
     Dates: start: 20100101, end: 20111005
  4. FLUOXETINE HCL [Concomitant]
     Indication: DEPRESSION
     Dosage: 40 MG DAILY
     Route: 048
  5. DONAREN [Concomitant]
     Indication: DEPRESSION
     Dosage: 100 MG DAILY
     Route: 048

REACTIONS (10)
  - UTERINE HAEMORRHAGE [None]
  - ABNORMAL SENSATION IN EYE [None]
  - SKIN BURNING SENSATION [None]
  - RASH PAPULAR [None]
  - ALOPECIA [None]
  - ARTHRALGIA [None]
  - BLISTER [None]
  - EYE SWELLING [None]
  - EYE INFECTION [None]
  - ANAEMIA [None]
